FAERS Safety Report 26179179 (Version 1)
Quarter: 2025Q4

REPORT INFORMATION
  Report Type: Spontaneous
  Country: US (occurrence: US)
  Receive Date: 20251219
  Receipt Date: 20251219
  Transmission Date: 20260117
  Serious: No
  Sender: BAYER HEALTHCARE LLC
  Company Number: US-BAYER-2025A166927

PATIENT
  Age: 55 Year
  Sex: Female

DRUGS (1)
  1. CLARITIN [Suspect]
     Active Substance: LORATADINE
     Indication: Sinusitis
     Dosage: 1 REDITAB
     Route: 048
     Dates: start: 20251218

REACTIONS (2)
  - Product use in unapproved indication [Unknown]
  - Wrong technique in product usage process [None]

NARRATIVE: CASE EVENT DATE: 20251218
